FAERS Safety Report 25047691 (Version 1)
Quarter: 2025Q1

REPORT INFORMATION
  Report Type: Spontaneous
  Country: US (occurrence: None)
  Receive Date: 20250306
  Receipt Date: 20250306
  Transmission Date: 20250408
  Serious: No
  Sender: INCYTE
  Company Number: US-002147023-NVSC2025US030376

PATIENT
  Age: 35 Year

DRUGS (19)
  1. JAKAFI [Suspect]
     Active Substance: RUXOLITINIB
     Indication: Chronic cutaneous lupus erythematosus
     Route: 065
  2. HYDROXYCHLOROQUINE [Suspect]
     Active Substance: HYDROXYCHLOROQUINE
     Indication: Chronic cutaneous lupus erythematosus
     Route: 065
  3. CHLOROQUINE [Suspect]
     Active Substance: CHLOROQUINE
     Indication: Chronic cutaneous lupus erythematosus
     Route: 065
  4. METHOTREXATE [Suspect]
     Active Substance: METHOTREXATE
     Indication: Chronic cutaneous lupus erythematosus
     Route: 065
  5. AZATHIOPRINE [Suspect]
     Active Substance: AZATHIOPRINE
     Indication: Chronic cutaneous lupus erythematosus
     Route: 065
  6. DOXAZOSIN [Suspect]
     Active Substance: DOXAZOSIN MESYLATE
     Indication: Chronic cutaneous lupus erythematosus
     Route: 065
  7. DOXAZOSIN [Suspect]
     Active Substance: DOXAZOSIN MESYLATE
     Indication: Raynaud^s phenomenon
  8. SILDENAFIL [Suspect]
     Active Substance: SILDENAFIL
     Indication: Chronic cutaneous lupus erythematosus
     Route: 065
  9. SILDENAFIL [Suspect]
     Active Substance: SILDENAFIL
     Indication: Raynaud^s phenomenon
  10. BELIMUMAB [Suspect]
     Active Substance: BELIMUMAB
     Indication: Chronic cutaneous lupus erythematosus
     Route: 065
  11. DAPSONE [Suspect]
     Active Substance: DAPSONE
     Indication: Chronic cutaneous lupus erythematosus
     Route: 065
  12. TOFACITINIB [Suspect]
     Active Substance: TOFACITINIB
     Indication: Chronic cutaneous lupus erythematosus
     Route: 065
  13. LENALIDOMIDE [Suspect]
     Active Substance: LENALIDOMIDE
     Indication: Chronic cutaneous lupus erythematosus
     Route: 065
  14. BOTULINUM TOXIN NOS [Suspect]
     Active Substance: BOTULINUM TOXIN NOS
     Indication: Chronic cutaneous lupus erythematosus
     Route: 065
  15. MYCOPHENOLATE MOFETIL [Suspect]
     Active Substance: MYCOPHENOLATE MOFETIL
     Indication: Chronic cutaneous lupus erythematosus
     Route: 065
  16. ASPIRIN [Suspect]
     Active Substance: ASPIRIN
     Indication: Chronic cutaneous lupus erythematosus
     Dosage: 81 MG, QD
     Route: 065
  17. ASPIRIN [Suspect]
     Active Substance: ASPIRIN
     Indication: Raynaud^s phenomenon
  18. PENTOXIFYLLINE [Suspect]
     Active Substance: PENTOXIFYLLINE
     Indication: Chronic cutaneous lupus erythematosus
     Route: 065
  19. RITUXIMAB [Suspect]
     Active Substance: RITUXIMAB
     Indication: Autoimmune haemolytic anaemia
     Route: 065

REACTIONS (1)
  - Drug ineffective for unapproved indication [Unknown]
